FAERS Safety Report 18788495 (Version 1)
Quarter: 2021Q1

REPORT INFORMATION
  Report Type: Spontaneous
  Country: JP (occurrence: JP)
  Receive Date: 20210126
  Receipt Date: 20210126
  Transmission Date: 20210419
  Serious: Yes (Other)
  Sender: FDA-Public Use
  Company Number: JP-GLAXOSMITHKLINE-JP2021013698

PATIENT
  Sex: Female

DRUGS (1)
  1. TRELEGY ELLIPTA [Suspect]
     Active Substance: FLUTICASONE FUROATE\UMECLIDINIUM BROMIDE\VILANTEROL TRIFENATATE
     Dosage: 100 ?G, QD, BEFORE BEDTIME
     Route: 055

REACTIONS (5)
  - Productive cough [Not Recovered/Not Resolved]
  - Pneumothorax [Unknown]
  - Dysphonia [Not Recovered/Not Resolved]
  - Glycosuria [Unknown]
  - Cardiac operation [Unknown]
